FAERS Safety Report 4493925-2 (Version None)
Quarter: 2004Q4

REPORT INFORMATION
  Report Type: 
  Country: None (occurrence: None)
  Receive Date: 20041102
  Receipt Date: 20040526
  Transmission Date: 20050328
  Serious: Yes (Hospitalization, Disabling)
  Sender: FDA-Public Use
  Company Number: 8102

PATIENT
  Age: 73 Year
  Sex: Female

DRUGS (17)
  1. METHOTREXATE [Suspect]
     Indication: RHEUMATOID ARTHRITIS
     Dosage: 25 MG WEEKLY SC
     Route: 058
     Dates: start: 20010307
  2. REMICADE [Suspect]
     Indication: RHEUMATOID ARTHRITIS
     Dosage: 200 MG OTH IV
     Route: 042
     Dates: start: 20020312, end: 20020402
  3. PREMARIN PLUS [Concomitant]
  4. ATENOLOL [Concomitant]
  5. CAPOTEN [Concomitant]
  6. GLUCOSAMINE W/CHONDROITIN SULFATES [Concomitant]
  7. MAGANESE [Concomitant]
  8. IMITREX [Concomitant]
  9. LEVOTHYROXINE SODIUM [Concomitant]
  10. CAFERGOT [Concomitant]
  11. CALCIUM WITH VITAMIN D [Concomitant]
  12. POTASSIUM [Concomitant]
  13. PEPCID [Concomitant]
  14. AMITRIPTYLINE [Concomitant]
  15. VITAMIN B-12 [Concomitant]
  16. LORTAB [Concomitant]
  17. PLETAL [Concomitant]

REACTIONS (5)
  - HAEMOGLOBIN DECREASED [None]
  - HAEMORRHAGIC CEREBRAL INFARCTION [None]
  - HAEMORRHAGIC STROKE [None]
  - HYPERTENSION [None]
  - PLATELET COUNT ABNORMAL [None]
